FAERS Safety Report 7134225-1 (Version None)
Quarter: 2010Q4

REPORT INFORMATION
  Report Type: 
  Country: None (occurrence: None)
  Receive Date: 20101203
  Receipt Date: 20101129
  Transmission Date: 20110411
  Serious: Yes (Other)
  Sender: FDA-Public Use
  Company Number: CA-AMGEN-CANSP2010003070

PATIENT

DRUGS (4)
  1. ENBREL [Suspect]
     Indication: PSORIASIS
     Dosage: 50 MG, 2 TIMES/WK
     Dates: start: 20100913, end: 20101126
  2. SPIRIVA [Concomitant]
  3. UNIPHYL [Concomitant]
  4. SYMBICORT [Concomitant]

REACTIONS (3)
  - ARTHRALGIA [None]
  - DYSPNOEA [None]
  - PRODUCTIVE COUGH [None]
